FAERS Safety Report 8503362-9 (Version None)
Quarter: 2012Q3

REPORT INFORMATION
  Report Type: 
  Country: None (occurrence: None)
  Receive Date: 20120711
  Receipt Date: 20120629
  Transmission Date: 20120928
  Serious: No
  Sender: FDA-Public Use
  Company Number: US-ASTRAZENECA-2011SE78386

PATIENT
  Age: 52 Year
  Sex: Female
  Weight: 124.7 kg

DRUGS (7)
  1. SEROQUEL [Suspect]
     Indication: BIPOLAR DISORDER
     Route: 048
  2. SEROQUEL [Suspect]
     Route: 048
  3. SEROQUEL [Suspect]
     Route: 048
  4. SEROQUEL [Suspect]
     Route: 048
  5. SEROQUEL [Suspect]
     Indication: MANIA
     Route: 048
  6. SEROQUEL [Suspect]
     Route: 048
  7. TRAZODONE HCL [Concomitant]
     Indication: SLEEP DISORDER

REACTIONS (6)
  - MANIA [None]
  - INCORRECT DOSE ADMINISTERED [None]
  - DRUG INEFFECTIVE [None]
  - FIBROMYALGIA [None]
  - INSOMNIA [None]
  - DRUG DOSE OMISSION [None]
